FAERS Safety Report 7765841-1 (Version None)
Quarter: 2011Q3

REPORT INFORMATION
  Report Type: 
  Country: None (occurrence: None)
  Receive Date: 20110921
  Receipt Date: 20110906
  Transmission Date: 20111222
  Serious: Yes (Death, Hospitalization)
  Sender: FDA-Public Use
  Company Number: PL-WATSON-2011-14677

PATIENT
  Age: 10 Year
  Sex: Female

DRUGS (2)
  1. CYCLOSPORINE [Suspect]
     Indication: TRANSPLANT REJECTION
     Dosage: UNK
  2. TACROLIMUS [Suspect]
     Indication: TRANSPLANT REJECTION
     Dosage: 4 MG, DAILY ADJUSTING TO TROUGH OF 10-20 NG/ML
     Route: 042

REACTIONS (3)
  - LEUKOENCEPHALOPATHY [None]
  - CEREBROVASCULAR INSUFFICIENCY [None]
  - DRUG INEFFECTIVE [None]
